FAERS Safety Report 5011570-7 (Version None)
Quarter: 2006Q2

REPORT INFORMATION
  Report Type: 
  Country: None (occurrence: None)
  Receive Date: 20060524
  Receipt Date: 20060509
  Transmission Date: 20061013
  Serious: Yes (Hospitalization)
  Sender: FDA-Public Use
  Company Number: US-2006-001678

PATIENT
  Age: 42 Year
  Sex: Female

DRUGS (13)
  1. BETASERON [Suspect]
     Indication: MULTIPLE SCLEROSIS
     Dosage: 2 MIU, EVERY 2D, SUBCUTANEOUS
     Route: 058
     Dates: start: 20060109, end: 20060116
  2. CORTICOSTEROIDS FOR SYSTEMIC USE () [Suspect]
     Dosage: INTRAVENOUS
     Route: 042
     Dates: start: 20060116, end: 20060125
  3. NEURONTIN [Concomitant]
  4. ASPIRIN [Concomitant]
  5. IBUPROFEN [Concomitant]
  6. OXYCONTIN [Concomitant]
  7. PRILOSEC [Concomitant]
  8. DITROPAN /USA/ (OXYBUTYNIN) [Concomitant]
  9. QVAR 40 [Concomitant]
  10. ALBUTEROL SULFATE AUTOHALER [Concomitant]
  11. EFEXOR /USA/ (VENLAFAXINE HYDROCHLORIDE) [Concomitant]
  12. TEMAZEPAM [Concomitant]
  13. LASIX [Concomitant]

REACTIONS (7)
  - DIABETES MELLITUS [None]
  - IDIOSYNCRATIC DRUG REACTION [None]
  - LUNG INJURY [None]
  - PNEUMONIA [None]
  - PULMONARY OEDEMA [None]
  - RESPIRATORY FAILURE [None]
  - WHITE BLOOD CELL COUNT INCREASED [None]
